FAERS Safety Report 4556034-X (Version None)
Quarter: 2005Q1

REPORT INFORMATION
  Report Type: 
  Country: None (occurrence: None)
  Receive Date: 20050119
  Receipt Date: 20050111
  Transmission Date: 20050727
  Serious: Yes (Other)
  Sender: FDA-Public Use
  Company Number: BR-GLAXOSMITHKLINE-A0540806A

PATIENT
  Age: 21 Year
  Sex: Female

DRUGS (2)
  1. SERETIDE [Suspect]
     Indication: DRUG USE FOR UNKNOWN INDICATION
     Dosage: 1PUFF TWICE PER DAY
     Route: 055
     Dates: start: 20050106
  2. ORAL CONTRACEPTIVE [Concomitant]
     Dosage: 1TAB PER DAY

REACTIONS (1)
  - VAGINAL HAEMORRHAGE [None]
